FAERS Safety Report 20037165 (Version 1)
Quarter: 2021Q4

REPORT INFORMATION
  Report Type: Report from Study
  Country: HU (occurrence: HU)
  Receive Date: 20211105
  Receipt Date: 20211105
  Transmission Date: 20220303
  Serious: Yes (Hospitalization)
  Sender: FDA-Public Use
  Company Number: US-CELGENE-HUN-20211002805

PATIENT
  Age: 70 Year
  Sex: Female
  Weight: 55 kg

DRUGS (13)
  1. AZACITIDINE [Suspect]
     Active Substance: AZACITIDINE
     Indication: Acute myeloid leukaemia
     Dosage: 20 MILLIGRAM/SQ. METER
     Route: 058
     Dates: start: 20210621, end: 20210917
  2. VENETOCLAX [Suspect]
     Active Substance: VENETOCLAX
     Indication: Acute myeloid leukaemia
     Route: 065
     Dates: start: 20210621
  3. VITAMIN D3 [Concomitant]
     Active Substance: CHOLECALCIFEROL
     Indication: Prophylaxis
     Dosage: 3000 IU (INTERNATIONAL UNIT)
     Route: 048
     Dates: start: 20200911
  4. SULFAMETHOXAZOLE\TRIMETHOPRIM [Concomitant]
     Active Substance: SULFAMETHOXAZOLE\TRIMETHOPRIM
     Indication: Antibiotic prophylaxis
     Dosage: 171.4286 MILLIGRAM
     Route: 048
     Dates: start: 20201021
  5. ALLOPURINOL [Concomitant]
     Active Substance: ALLOPURINOL
     Indication: Prophylaxis
     Dosage: 300 MILLIGRAM
     Route: 048
     Dates: start: 20200923
  6. TELVIRAN [Concomitant]
     Indication: Antiviral prophylaxis
     Dosage: 171.4286 MILLIGRAM
     Route: 048
     Dates: start: 20201021
  7. INDAPAMIDE [Concomitant]
     Active Substance: INDAPAMIDE
     Indication: Hypertension
     Dosage: 1.5 MILLIGRAM
     Route: 048
     Dates: start: 2004
  8. DENOSUMAB [Concomitant]
     Active Substance: DENOSUMAB
     Indication: Osteoporosis
     Dosage: .3333 MILLIGRAM
     Route: 065
     Dates: start: 2004
  9. ROSUVASTATIN [Concomitant]
     Active Substance: ROSUVASTATIN
     Indication: Hyperlipidaemia
     Dosage: 60 MILLIGRAM
     Route: 048
     Dates: start: 2004
  10. FILGRASTIM [Concomitant]
     Active Substance: FILGRASTIM
     Indication: Neutropenia
     Dosage: 24000000 IU (INTERNATIONAL UNIT)
     Route: 058
     Dates: start: 20210920
  11. CINOLAZEPAM [Concomitant]
     Active Substance: CINOLAZEPAM
     Indication: Muscle spasms
     Route: 048
     Dates: start: 20200928
  12. ALFACALCIDOL [Concomitant]
     Active Substance: ALFACALCIDOL
     Indication: Osteopetrosis
     Dosage: .25 MICROGRAM
     Route: 048
     Dates: start: 20200911
  13. SULFASALAZINE [Concomitant]
     Active Substance: SULFASALAZINE
     Indication: Rheumatoid arthritis
     Dosage: 2000 MILLIGRAM
     Route: 048
     Dates: start: 2005

REACTIONS (1)
  - Bacillus infection [Not Recovered/Not Resolved]

NARRATIVE: CASE EVENT DATE: 20211003
